FAERS Safety Report 8005684-7 (Version None)
Quarter: 2011Q4

REPORT INFORMATION
  Report Type: 
  Country: None (occurrence: None)
  Receive Date: 20111223
  Receipt Date: 20111205
  Transmission Date: 20120403
  Serious: Yes (Other)
  Sender: FDA-Public Use
  Company Number: CA-ROCHE-GNE288171

PATIENT
  Sex: Female
  Weight: 55.059 kg

DRUGS (5)
  1. OMALIZUMAB [Suspect]
     Indication: ALLERGY TO ANIMAL
     Dosage: 150 MG, 1/MONTH
     Dates: start: 20090727
  2. OMALIZUMAB [Suspect]
     Dosage: 150 MG, 1/MONTH
     Dates: start: 20101229
  3. OMALIZUMAB [Suspect]
     Indication: ASTHMA
     Dosage: 150 MG, 1/MONTH
     Route: 058
     Dates: start: 20071105
  4. OMALIZUMAB [Suspect]
     Route: 058
     Dates: start: 20111205
  5. ADVAIR DISKUS 100/50 [Concomitant]
     Indication: PRODUCT USED FOR UNKNOWN INDICATION

REACTIONS (11)
  - LOWER RESPIRATORY TRACT INFECTION [None]
  - ASTHMA [None]
  - COUGH [None]
  - LETHARGY [None]
  - NASOPHARYNGITIS [None]
  - DYSPNOEA [None]
  - SLEEP DISORDER [None]
  - LARYNGITIS [None]
  - PRODUCTIVE COUGH [None]
  - WHEEZING [None]
  - SOMNOLENCE [None]
